FAERS Safety Report 14289605 (Version 25)
Quarter: 2019Q3

REPORT INFORMATION
  Report Type: Spontaneous
  Country: US (occurrence: US)
  Receive Date: 20171214
  Receipt Date: 20190827
  Transmission Date: 20191004
  Serious: Yes (Hospitalization, Other)
  Sender: FDA-Public Use
  Company Number: US-ACTELION-A-NJ2017-164232

PATIENT
  Age: 72 Year
  Sex: Female
  Weight: 50.79 kg

DRUGS (15)
  1. SILDENAFIL CITRATE. [Concomitant]
     Active Substance: SILDENAFIL CITRATE
     Dosage: UNK
  2. PROTONIX [Concomitant]
     Active Substance: PANTOPRAZOLE SODIUM
     Dosage: UNK
  3. ALDACTONE [Concomitant]
     Active Substance: SPIRONOLACTONE
     Dosage: UNK
  4. VELETRI [Suspect]
     Active Substance: EPOPROSTENOL
     Dosage: 6 NG/KG, PER MIN
     Route: 042
  5. VELETRI [Suspect]
     Active Substance: EPOPROSTENOL
     Dosage: 20 NG/KG, PER MIN
     Route: 042
  6. VELETRI [Suspect]
     Active Substance: EPOPROSTENOL
     Dosage: 9 NG/KG, PER MIN
     Route: 042
  7. VELETRI [Suspect]
     Active Substance: EPOPROSTENOL
     Dosage: 22 NG/KG, PER MIN
     Route: 042
  8. REVATIO [Concomitant]
     Active Substance: SILDENAFIL CITRATE
     Dosage: UNK
  9. ELIQUIS [Concomitant]
     Active Substance: APIXABAN
     Dosage: UNK
  10. PACERONE [Concomitant]
     Active Substance: AMIODARONE HYDROCHLORIDE
     Dosage: UNK
  11. LOPRESSOR [Concomitant]
     Active Substance: METOPROLOL TARTRATE
     Dosage: UNK
  12. VELETRI [Suspect]
     Active Substance: EPOPROSTENOL
     Dosage: 10 NG/KG, PER MIN
     Route: 042
  13. LASIX [Concomitant]
     Active Substance: FUROSEMIDE
     Dosage: UNK
  14. VELETRI [Suspect]
     Active Substance: EPOPROSTENOL
     Indication: PULMONARY HYPERTENSION
     Dosage: 12 NG/KG, PER MIN
     Route: 042
  15. ASPIRIN. [Concomitant]
     Active Substance: ASPIRIN
     Dosage: UNK

REACTIONS (43)
  - Pleural effusion [Recovered/Resolved]
  - Dyspnoea [Recovered/Resolved]
  - Ear discomfort [Unknown]
  - Fatigue [Unknown]
  - Malaise [Unknown]
  - Middle ear effusion [Unknown]
  - Blood calcium increased [Unknown]
  - Catheter site erythema [Unknown]
  - Heart rate increased [Recovering/Resolving]
  - Ear congestion [Not Recovered/Not Resolved]
  - Excessive cerumen production [Unknown]
  - Decreased appetite [Unknown]
  - Arthritis [Unknown]
  - Headache [Recovered/Resolved]
  - Catheter site pain [Unknown]
  - Suture removal [Unknown]
  - Insomnia [Unknown]
  - Seasonal allergy [Unknown]
  - Ear infection [Unknown]
  - Tinnitus [Not Recovered/Not Resolved]
  - Sinus disorder [Not Recovered/Not Resolved]
  - Pulmonary hypertension [Recovered/Resolved]
  - Hypoacusis [Unknown]
  - Flushing [Unknown]
  - Arthralgia [Unknown]
  - Dyspnoea exertional [Unknown]
  - Sinusitis [Unknown]
  - Dizziness [Unknown]
  - Asthenia [Unknown]
  - Hypersensitivity [Unknown]
  - Pain in extremity [Unknown]
  - Atrial fibrillation [Recovering/Resolving]
  - Head discomfort [Unknown]
  - Ear tube insertion [Unknown]
  - Diarrhoea [Unknown]
  - Dysgeusia [Unknown]
  - Pain in jaw [Unknown]
  - Nausea [Unknown]
  - Blood pressure increased [Unknown]
  - Bacterial infection [Unknown]
  - Catheter site irritation [Unknown]
  - Unevaluable event [Unknown]
  - Complication associated with device [Unknown]

NARRATIVE: CASE EVENT DATE: 20171230
